FAERS Safety Report 16582827 (Version 1)
Quarter: 2019Q3

REPORT INFORMATION
  Report Type: Report from Study
  Country: US (occurrence: US)
  Receive Date: 20190717
  Receipt Date: 20190717
  Transmission Date: 20191004
  Serious: Yes (Other)
  Sender: FDA-Public Use
  Company Number: US-HORIZON-KRY-0476-2019

PATIENT
  Age: 77 Year
  Sex: Female

DRUGS (7)
  1. BENADRYL [Concomitant]
     Active Substance: DIPHENHYDRAMINE HYDROCHLORIDE
     Indication: PREMEDICATION
     Dosage: 50 MG
  2. SOLU-MEDROL [Concomitant]
     Active Substance: METHYLPREDNISOLONE SODIUM SUCCINATE
     Indication: PREMEDICATION
     Dosage: 125 MG
  3. ELIQUIS [Concomitant]
     Active Substance: APIXABAN
  4. PREDNISONE. [Concomitant]
     Active Substance: PREDNISONE
  5. KRYSTEXXA [Suspect]
     Active Substance: PEGLOTICASE
     Indication: GOUT
     Dosage: 8 MG EVERY 2 WEEKS
     Dates: start: 20190703, end: 20190703
  6. BUMEX [Concomitant]
     Active Substance: BUMETANIDE
     Dates: start: 2017
  7. COLCHICINE. [Concomitant]
     Active Substance: COLCHICINE
     Dates: start: 20190312

REACTIONS (7)
  - Dizziness [Not Recovered/Not Resolved]
  - Pruritus [Not Recovered/Not Resolved]
  - Hypotension [Not Recovered/Not Resolved]
  - Tremor [Not Recovered/Not Resolved]
  - Muscle spasms [Not Recovered/Not Resolved]
  - Loss of control of legs [Not Recovered/Not Resolved]
  - Asthenia [Unknown]

NARRATIVE: CASE EVENT DATE: 201907
